FAERS Safety Report 24377105 (Version 2)
Quarter: 2024Q4

REPORT INFORMATION
  Report Type: Report from Study
  Country: CO (occurrence: CO)
  Receive Date: 20240930
  Receipt Date: 20241004
  Transmission Date: 20250114
  Serious: Yes (Hospitalization, Other)
  Sender: ABBVIE
  Company Number: CO-ABBVIE-5937408

PATIENT
  Age: 86 Year
  Sex: Female

DRUGS (3)
  1. VENETOCLAX [Suspect]
     Active Substance: VENETOCLAX
     Indication: Acute myeloid leukaemia
     Dosage: 100 MILLIGRAM
     Route: 048
     Dates: start: 20240823
  2. AZACITIDINE [Concomitant]
     Active Substance: AZACITIDINE
     Indication: Acute myeloid leukaemia
     Route: 058
  3. AZACITIDINE [Concomitant]
     Active Substance: AZACITIDINE
     Indication: Acute myeloid leukaemia
     Dosage: FREQUENCY  FROM DAY 1 TO 7
     Route: 058

REACTIONS (4)
  - Neutrophil count decreased [Recovered/Resolved]
  - Bronchopulmonary aspergillosis [Unknown]
  - Pseudomonas test positive [Recovered/Resolved]
  - Systemic mycosis [Unknown]

NARRATIVE: CASE EVENT DATE: 20240823
